FAERS Safety Report 4698930-9 (Version None)
Quarter: 2005Q2

REPORT INFORMATION
  Report Type: 
  Country: None (occurrence: None)
  Receive Date: 20050624
  Receipt Date: 20050610
  Transmission Date: 20051028
  Serious: Yes (Death)
  Sender: FDA-Public Use
  Company Number: IT-JNJFOC-20050603488

PATIENT
  Sex: Female

DRUGS (6)
  1. REOPRO [Suspect]
     Dosage: 4.5 ML IN 750 ML DILUENT AT 13.0 ML/H
     Route: 042
  2. REOPRO [Suspect]
     Indication: ACUTE MYOCARDIAL INFARCTION
     Route: 042
  3. RETEPLASE [Suspect]
     Indication: ACUTE MYOCARDIAL INFARCTION
     Route: 042
  4. HEPARIN [Concomitant]
  5. HEPARIN [Concomitant]
  6. ASPIRIN [Concomitant]

REACTIONS (1)
  - MYOCARDIAL RUPTURE [None]
